FAERS Safety Report 6108836-6 (Version None)
Quarter: 2009Q1

REPORT INFORMATION
  Report Type: 
  Country: None (occurrence: None)
  Receive Date: 20090306
  Receipt Date: 20090303
  Transmission Date: 20090719
  Serious: Yes (Hospitalization)
  Sender: FDA-Public Use
  Company Number: 2009SP003316

PATIENT
  Age: 65 Year
  Sex: Female

DRUGS (7)
  1. PEG-INTRON [Suspect]
     Indication: HEPATITIS C
     Dosage: 50 MCG; QW; SC
     Route: 058
     Dates: start: 20080909, end: 20090120
  2. REBETOL [Suspect]
     Indication: HEPATITIS C
     Dosage: 600 MG; QD; PO
     Route: 048
     Dates: start: 20080909, end: 20090127
  3. PARIET [Concomitant]
  4. NORVASC [Concomitant]
  5. JUVELA N [Concomitant]
  6. CYANOCOBALAMIN [Concomitant]
  7. SLOW-K [Concomitant]

REACTIONS (2)
  - ENDOCARDITIS BACTERIAL [None]
  - MITRAL VALVE INCOMPETENCE [None]
